FAERS Safety Report 4654348-6 (Version None)
Quarter: 2005Q2

REPORT INFORMATION
  Report Type: 
  Country: None (occurrence: None)
  Receive Date: 20050404
  Receipt Date: 20041210
  Transmission Date: 20051028
  Serious: No
  Sender: FDA-Public Use
  Company Number: USA040566464

PATIENT
  Age: 75 Year
  Sex: Female
  Weight: 86 kg

DRUGS (8)
  1. FORTEO [Suspect]
     Indication: OSTEOPOROSIS
     Dosage: 20 UG DAY
     Dates: start: 20040428
  2. CYMBALTA [Suspect]
     Indication: DEPRESSION
     Dosage: 20 MG/ 2 DAY
     Dates: start: 20041101
  3. LAMICTAL [Concomitant]
  4. KEPPRA [Concomitant]
  5. LEVOXYL [Concomitant]
  6. QUINIDINE SULFATE [Concomitant]
  7. VITAMINS [Concomitant]
  8. ASPIRIN [Concomitant]

REACTIONS (8)
  - ASTHENIA [None]
  - DRUG INEFFECTIVE [None]
  - FALL [None]
  - FATIGUE [None]
  - INJECTION SITE HAEMORRHAGE [None]
  - MEMORY IMPAIRMENT [None]
  - PAIN [None]
  - WRIST FRACTURE [None]
